FAERS Safety Report 22081222 (Version 2)
Quarter: 2023Q1

REPORT INFORMATION
  Report Type: Other
  Country: GB (occurrence: GB)
  Receive Date: 20230309
  Receipt Date: 20230321
  Transmission Date: 20230418
  Serious: Yes (Other)
  Sender: FDA-Public Use
  Company Number: GB-CELLTRION INC.-2023GB004925

PATIENT

DRUGS (15)
  1. RITUXIMAB [Suspect]
     Active Substance: RITUXIMAB
     Indication: Diffuse large B-cell lymphoma
     Dosage: 375 MG/M2
     Route: 042
     Dates: start: 20201016, end: 20210129
  2. RITUXIMAB [Suspect]
     Active Substance: RITUXIMAB
     Dosage: UNK
     Route: 042
     Dates: start: 20220407, end: 20220421
  3. RITUXIMAB [Suspect]
     Active Substance: RITUXIMAB
     Dosage: UNK
     Route: 042
     Dates: start: 20210201, end: 20210219
  4. RITUXIMAB [Suspect]
     Active Substance: RITUXIMAB
     Indication: Diffuse large B-cell lymphoma
     Dosage: 1400 MG SUBCUTANEOUS FROM CYCLE 2, RECEIVED FURTHER 3 DOSES /FEB/2022 TO /APR/2022 WITH
     Route: 058
     Dates: start: 202202, end: 202204
  5. RITUXIMAB [Suspect]
     Active Substance: RITUXIMAB
     Dosage: 1400 MG SUBCUTANEOUS FROM CYCLE 2, RECEIVED FURTHER 3 DOSES /FEB/2022 TO /APR/2022 WITH
     Route: 058
  6. GEMCITABINE [Suspect]
     Active Substance: GEMCITABINE
     Indication: Diffuse large B-cell lymphoma recurrent
     Dosage: UNK
     Dates: start: 20210201, end: 20210219
  7. GEMCITABINE [Suspect]
     Active Substance: GEMCITABINE
     Dosage: 2000 MG/M2, 1/WEEK
     Route: 042
     Dates: start: 20220204, end: 20220304
  8. OXALIPLATIN [Suspect]
     Active Substance: OXALIPLATIN
     Indication: Diffuse large B-cell lymphoma recurrent
     Dosage: UNK
     Dates: start: 20210201, end: 20210219
  9. OXALIPLATIN [Suspect]
     Active Substance: OXALIPLATIN
     Dosage: 200 MG/M2, 1/WEEK
     Route: 042
     Dates: start: 20220204, end: 20220304
  10. BENDAMUSTINE [Concomitant]
     Active Substance: BENDAMUSTINE
     Indication: Diffuse large B-cell lymphoma recurrent
     Dosage: ON DAYS 1 AND 2
     Route: 042
     Dates: start: 20220407, end: 20220408
  11. CYCLOPHOSPHAMIDE [Concomitant]
     Active Substance: CYCLOPHOSPHAMIDE
     Indication: Diffuse large B-cell lymphoma
     Dosage: 3 UNK, 1/WEEK
     Route: 042
     Dates: start: 20201016, end: 20210201
  12. DOXORUBICIN [Concomitant]
     Active Substance: DOXORUBICIN
     Indication: Diffuse large B-cell lymphoma
     Dosage: RECEIVED DOSE ON 01/FEB/2021
     Route: 042
     Dates: start: 20201016, end: 20210129
  13. POLATUZUMAB VEDOTIN [Concomitant]
     Active Substance: POLATUZUMAB VEDOTIN
     Indication: Diffuse large B-cell lymphoma recurrent
     Dosage: 1.8 MG/KG
     Route: 042
     Dates: start: 20220407, end: 20220408
  14. VINCRISTINE [Concomitant]
     Active Substance: VINCRISTINE
     Indication: Diffuse large B-cell lymphoma
     Dosage: RECEIVED DOSE ON 01/FEB/2021
     Route: 042
     Dates: start: 20201016, end: 20210129
  15. PREDNISOLONE [Concomitant]
     Active Substance: PREDNISOLONE
     Indication: Diffuse large B-cell lymphoma
     Dosage: 3, 1/WEEK
     Route: 048
     Dates: start: 20201016, end: 20210201

REACTIONS (1)
  - Disease progression [Unknown]
